FAERS Safety Report 16295629 (Version 2)
Quarter: 2019Q2

REPORT INFORMATION
  Report Type: Spontaneous
  Country: US (occurrence: US)
  Receive Date: 20190509
  Receipt Date: 20190625
  Transmission Date: 20190711
  Serious: No
  Sender: FDA-Public Use
  Company Number: US-SA-2019SA122498

PATIENT
  Age: 36 Year
  Sex: Female
  Weight: 173.42 kg

DRUGS (2)
  1. DUPIXENT [Suspect]
     Active Substance: DUPILUMAB
     Indication: ASTHMA
     Dosage: 600 MG IN TWO DIFFERENT SYRINGES
     Route: 058
     Dates: start: 20190417
  2. DUONEB [Concomitant]
     Active Substance: ALBUTEROL SULFATE\IPRATROPIUM BROMIDE

REACTIONS (5)
  - Somatic symptom disorder [Unknown]
  - Product use issue [Unknown]
  - Dizziness [Unknown]
  - Injection site rash [Unknown]
  - Pain in extremity [Unknown]

NARRATIVE: CASE EVENT DATE: 20190417
